FAERS Safety Report 6601275-0 (Version None)
Quarter: 2010Q1

REPORT INFORMATION
  Report Type: 
  Country: None (occurrence: None)
  Receive Date: 20100225
  Receipt Date: 20100216
  Transmission Date: 20100710
  Serious: Yes (Hospitalization)
  Sender: FDA-Public Use
  Company Number: JP-PFIZER INC-2010009876

PATIENT
  Age: 74 Year
  Sex: Male
  Weight: 57.8 kg

DRUGS (10)
  1. LIPITOR [Suspect]
     Indication: HYPERCHOLESTEROLAEMIA
     Dosage: 10 MG, 1X/DAY
     Dates: start: 20081225, end: 20100121
  2. METFORMIN HCL [Suspect]
     Indication: DIABETES MELLITUS
     Dosage: FREQUENCY: 3X/DAY,
     Route: 048
     Dates: start: 20090514, end: 20100121
  3. MICARDIS [Suspect]
     Indication: HYPERTENSION
     Dosage: FREQUENCY: 1X/DAY,
     Route: 048
  4. URSO 250 [Concomitant]
     Dosage: UNK
     Route: 048
  5. GASMOTIN [Concomitant]
     Dosage: UNK
     Route: 048
  6. NAUZELIN [Concomitant]
     Dosage: UNK
     Route: 048
  7. AMANTADINE HYDROCHLORIDE [Concomitant]
     Dosage: UNK
     Route: 048
  8. URALYT-U [Concomitant]
     Dosage: UNK
     Route: 048
  9. VOGLIBOSE [Concomitant]
     Dosage: UNK
     Route: 048
  10. NOVORAPID [Concomitant]
     Dosage: 30 MIX

REACTIONS (1)
  - PLATELET COUNT DECREASED [None]
